FAERS Safety Report 5022706-6 (Version None)
Quarter: 2006Q2

REPORT INFORMATION
  Report Type: 
  Country: None (occurrence: None)
  Receive Date: 20060605
  Receipt Date: 20060518
  Transmission Date: 20061013
  Serious: Yes (Other)
  Sender: FDA-Public Use
  Company Number: GR200605002257

PATIENT
  Age: 21 Year
  Sex: Female
  Weight: 60 kg

DRUGS (4)
  1. LADOSE (FLUOXETINE HYDROCHLORIDE) SOLUTION [Suspect]
     Indication: DEPRESSION
     Dosage: 20 MG, DAILY (1/D), ORAL
     Route: 048
     Dates: start: 20060401
  2. ABILIFY [Concomitant]
  3. IRON (IRON) [Concomitant]
  4. NORGESIC TABLETS (ORPHENADRINE CITRATE, PARACETAMOL) [Concomitant]

REACTIONS (2)
  - BUNDLE BRANCH BLOCK LEFT [None]
  - MITRAL VALVE INCOMPETENCE [None]
